FAERS Safety Report 6371922-X (Version None)
Quarter: 2009Q3

REPORT INFORMATION
  Report Type: 
  Country: None (occurrence: None)
  Receive Date: 20090916
  Receipt Date: 20090916
  Transmission Date: 20100115
  Serious: Yes (Hospitalization)
  Sender: FDA-Public Use
  Company Number: None

PATIENT
  Age: 55 Year
  Sex: Male
  Weight: 95.4 kg

DRUGS (1)
  1. HYDROCHLOROTHIAZIDE [Suspect]
     Indication: HYPERTENSION
     Dates: start: 20021213, end: 20090901

REACTIONS (4)
  - HYPONATRAEMIA [None]
  - METABOLIC ALKALOSIS [None]
  - POLYDIPSIA [None]
  - SOMNOLENCE [None]
